FAERS Safety Report 6087130-6 (Version None)
Quarter: 2009Q1

REPORT INFORMATION
  Report Type: 
  Country: None (occurrence: None)
  Receive Date: 20090211
  Receipt Date: 20090128
  Transmission Date: 20090719
  Serious: Yes (Hospitalization)
  Sender: FDA-Public Use
  Company Number: CHPA2009US01359

PATIENT
  Sex: Male

DRUGS (2)
  1. THERAFLU NIGHTTIME SEVERE COLD WARMING SYRUP (NCH)(PARACETAMOL, DIPHEN [Suspect]
     Dosage: 6 TSP, Q4-6H, ORAL
     Route: 048
     Dates: start: 20090123
  2. THERAFLU WARMING RELIEF COLD + CHEST CONG (NCH)(ACETAMINOPHEN (PARACET [Suspect]
     Dosage: ORAL
     Route: 048

REACTIONS (2)
  - CEREBROVASCULAR ACCIDENT [None]
  - MYOCARDIAL INFARCTION [None]
